APPROVED DRUG PRODUCT: INULIN AND SODIUM CHLORIDE
Active Ingredient: INULIN
Strength: 100MG/ML
Dosage Form/Route: INJECTABLE;INJECTION
Application: N002282 | Product #001
Applicant: ISO TEX DIAGNOSTICS INC
Approved: Approved Prior to Jan 1, 1982 | RLD: No | RS: No | Type: DISCN